FAERS Safety Report 24172804 (Version 3)
Quarter: 2024Q4

REPORT INFORMATION
  Report Type: Spontaneous
  Country: US (occurrence: US)
  Receive Date: 20240805
  Receipt Date: 20241107
  Transmission Date: 20250115
  Serious: Yes (Hospitalization, Disabling)
  Sender: JOHNSON AND JOHNSON
  Company Number: US-JNJFOC-20240777417

PATIENT
  Age: 53 Year
  Sex: Female
  Weight: 53.572 kg

DRUGS (8)
  1. RISPERDAL [Suspect]
     Active Substance: RISPERIDONE
     Indication: Chorea
     Dosage: 0.5MG 1 TABLET IN THE EVENING FOR ONE WEEK
     Route: 048
     Dates: start: 20231108
  2. RISPERDAL [Suspect]
     Active Substance: RISPERIDONE
     Route: 048
  3. RISPERDAL [Suspect]
     Active Substance: RISPERIDONE
     Route: 048
     Dates: start: 20240507, end: 20240627
  4. RISPERDAL [Suspect]
     Active Substance: RISPERIDONE
     Route: 048
     Dates: start: 20231108, end: 20240627
  5. VALBENAZINE [Suspect]
     Active Substance: VALBENAZINE
     Indication: Product used for unknown indication
     Route: 048
     Dates: start: 20211111, end: 20211122
  6. VALBENAZINE [Suspect]
     Active Substance: VALBENAZINE
     Route: 048
     Dates: start: 20211123, end: 20211207
  7. VALBENAZINE [Suspect]
     Active Substance: VALBENAZINE
     Route: 048
     Dates: start: 20211208
  8. IBUPROFEN [Concomitant]
     Active Substance: IBUPROFEN
     Indication: Headache
     Route: 065
     Dates: start: 2021

REACTIONS (1)
  - Parkinsonism [Not Recovered/Not Resolved]

NARRATIVE: CASE EVENT DATE: 20240627
